FAERS Safety Report 18895041 (Version 1)
Quarter: 2021Q1

REPORT INFORMATION
  Report Type: Spontaneous
  Country: US (occurrence: US)
  Receive Date: 20210215
  Receipt Date: 20210215
  Transmission Date: 20210420
  Serious: No
  Sender: FDA-Public Use
  Company Number: US-BRISTOL-MYERS SQUIBB COMPANY-BMS-2021-012291

PATIENT
  Age: 28 Year
  Sex: Female

DRUGS (2)
  1. TRIAMCINOLONE ACETONIDE. [Suspect]
     Active Substance: TRIAMCINOLONE ACETONIDE
     Indication: ERYTHEMA NODOSUM
     Dosage: UNK
     Route: 030
  2. PREDNISONE. [Suspect]
     Active Substance: PREDNISONE
     Indication: ERYTHEMA NODOSUM
     Dosage: UNK
     Route: 048

REACTIONS (3)
  - Weight increased [Unknown]
  - Intentional product use issue [Unknown]
  - Blood glucose increased [Unknown]
